FAERS Safety Report 22541872 (Version 1)
Quarter: 2023Q2

REPORT INFORMATION
  Report Type: Spontaneous
  Country: US (occurrence: None)
  Receive Date: 20230608
  Receipt Date: 20230608
  Transmission Date: 20230722
  Serious: Yes (Life-Threatening)
  Sender: FDA-Public Use
  Company Number: None

PATIENT
  Age: 67 Year
  Sex: Male
  Weight: 96 kg

DRUGS (1)
  1. YESCARTA [Suspect]
     Active Substance: AXICABTAGENE CILOLEUCEL
     Indication: Diffuse large B-cell lymphoma
     Dates: start: 20230330

REACTIONS (8)
  - Pyrexia [None]
  - Hypotension [None]
  - Hypoxia [None]
  - Fatigue [None]
  - Somnolence [None]
  - Immune effector cell-associated neurotoxicity syndrome [None]
  - Bone lesion [None]
  - Metastases to bone [None]

NARRATIVE: CASE EVENT DATE: 20230401
